FAERS Safety Report 7922960 (Version 2)
Quarter: 2013Q4

REPORT INFORMATION
  Report Type: Spontaneous
  Country: US (occurrence: US)
  Receive Date: 20110429
  Receipt Date: 20131120
  Transmission Date: 20140711
  Serious: No
  Sender: FDA-Public Use
  Company Number: US-ASTRAZENECA-2010SE19400

PATIENT
  Age: 57 Year
  Sex: Female
  Weight: 71.7 kg

DRUGS (2)
  1. NEXIUM [Suspect]
     Indication: GASTROOESOPHAGEAL REFLUX DISEASE
     Route: 048
     Dates: start: 2005, end: 20131108
  2. NEXIUM [Suspect]
     Indication: STOMACH LESION EXCISION
     Route: 048
     Dates: start: 2005, end: 20131108

REACTIONS (7)
  - Dyspepsia [Unknown]
  - Panic disorder [Unknown]
  - Blood calcium decreased [Unknown]
  - Sensation of foreign body [Unknown]
  - Hypophagia [Unknown]
  - Vomiting [Unknown]
  - Drug dose omission [Unknown]
